FAERS Safety Report 6908759-6 (Version None)
Quarter: 2010Q3

REPORT INFORMATION
  Report Type: 
  Country: None (occurrence: None)
  Receive Date: 20100805
  Receipt Date: 20100719
  Transmission Date: 20110219
  Serious: Yes (Other)
  Sender: FDA-Public Use
  Company Number: A0861479A

PATIENT
  Age: 71 Year
  Sex: Male
  Weight: 83 kg

DRUGS (6)
  1. REQUIP [Suspect]
     Indication: PARKINSON'S DISEASE
     Dosage: 3MG THREE TIMES PER DAY
     Route: 048
     Dates: end: 20100201
  2. SINEMET [Concomitant]
     Indication: PARKINSON'S DISEASE
     Route: 048
  3. LORTAB [Concomitant]
     Route: 048
  4. MOTRIN [Concomitant]
     Dosage: 1200MG PER DAY
     Route: 048
  5. VALIUM [Concomitant]
     Dosage: 10MG PER DAY
     Route: 048
  6. CELEXA [Concomitant]
     Dosage: 20MG PER DAY
     Route: 048

REACTIONS (4)
  - AGGRESSION [None]
  - DEMENTIA [None]
  - MUSCULOSKELETAL STIFFNESS [None]
  - PATHOLOGICAL GAMBLING [None]
